FAERS Safety Report 25748305 (Version 1)
Quarter: 2025Q3

REPORT INFORMATION
  Report Type: Report from Study
  Country: CA (occurrence: CA)
  Receive Date: 20250902
  Receipt Date: 20250902
  Transmission Date: 20251021
  Serious: Yes (Other)
  Sender: Haleon PLC
  Company Number: CA-002147023-NVSC2024CA097050

PATIENT
  Age: 30 Year
  Sex: Female

DRUGS (6)
  1. DICLOFENAC SODIUM [Suspect]
     Active Substance: DICLOFENAC SODIUM
     Indication: Ankylosing spondylitis
     Route: 065
  2. DICLOFENAC SODIUM [Suspect]
     Active Substance: DICLOFENAC SODIUM
     Route: 065
  3. NAPROXEN [Concomitant]
     Active Substance: NAPROXEN
     Indication: Product used for unknown indication
  4. CIMZIA [Concomitant]
     Active Substance: CERTOLIZUMAB PEGOL
     Indication: Product used for unknown indication
  5. SIMPONI [Concomitant]
     Active Substance: GOLIMUMAB
     Indication: Product used for unknown indication
  6. CELEBREX [Concomitant]
     Active Substance: CELECOXIB
     Indication: Product used for unknown indication

REACTIONS (12)
  - Ankylosing spondylitis [Unknown]
  - Drug ineffective [Unknown]
  - Illness [Unknown]
  - Pharyngeal erythema [Unknown]
  - Psoriasis [Unknown]
  - Streptococcal infection [Unknown]
  - Gastrointestinal ulcer [Unknown]
  - Fatigue [Unknown]
  - Seasonal allergy [Unknown]
  - Epigastric discomfort [Unknown]
  - Malaise [Unknown]
  - Pain [Unknown]
